FAERS Safety Report 14605226 (Version 3)
Quarter: 2018Q3

REPORT INFORMATION
  Report Type: Report from Study
  Country: JP (occurrence: JP)
  Receive Date: 20180306
  Receipt Date: 20180716
  Transmission Date: 20181010
  Serious: Yes (Death, Hospitalization)
  Sender: FDA-Public Use
  Company Number: JP-PFIZER INC-2016345030

PATIENT
  Age: 81 Year
  Sex: Female
  Weight: 51 kg

DRUGS (7)
  1. XELJANZ [Suspect]
     Active Substance: TOFACITINIB CITRATE
     Dosage: 5 MG, ALTERNATE DAY
     Route: 048
     Dates: start: 20160607, end: 20160617
  2. XELJANZ [Suspect]
     Active Substance: TOFACITINIB CITRATE
     Indication: RHEUMATOID ARTHRITIS
     Dosage: 5 MG, 1X/DAY
     Route: 048
     Dates: start: 20140910, end: 20160606
  3. PREDNISOLONE. [Concomitant]
     Active Substance: PREDNISOLONE
     Dosage: 5.5 MG, DAILY
     Route: 048
     Dates: start: 20150706, end: 20150906
  4. PREDNISOLONE. [Concomitant]
     Active Substance: PREDNISOLONE
     Dosage: 6 MG, DAILY
     Route: 048
     Dates: end: 20150705
  5. PREDNISOLONE. [Concomitant]
     Active Substance: PREDNISOLONE
     Dosage: 4 MG, DAILY
     Route: 048
     Dates: start: 20151102, end: 20160617
  6. SELBEX [Concomitant]
     Active Substance: TEPRENONE
     Dosage: UNK
     Route: 048
  7. PREDNISOLONE. [Concomitant]
     Active Substance: PREDNISOLONE
     Dosage: 5 MG, DAILY
     Route: 048
     Dates: start: 20150907, end: 20151101

REACTIONS (2)
  - Respiratory failure [Fatal]
  - Infectious colitis [Not Recovered/Not Resolved]

NARRATIVE: CASE EVENT DATE: 20160607
